FAERS Safety Report 7957362-8 (Version None)
Quarter: 2011Q4

REPORT INFORMATION
  Report Type: 
  Country: None (occurrence: None)
  Receive Date: 20111205
  Receipt Date: 20111017
  Transmission Date: 20120403
  Serious: Yes (Other)
  Sender: FDA-Public Use
  Company Number: PHHY2011CN105095

PATIENT
  Age: 24 Month
  Sex: Male
  Weight: 13 kg

DRUGS (1)
  1. DIPHENOXYLATE HYDROCHLORIDE+ATROPINE [Suspect]
     Dosage: 30 DF, UNK

REACTIONS (9)
  - COMA [None]
  - DEAFNESS BILATERAL [None]
  - OVERDOSE [None]
  - TOXIC ENCEPHALOPATHY [None]
  - ACCIDENTAL EXPOSURE [None]
  - CONVULSION [None]
  - RESPIRATORY ARREST [None]
  - MYDRIASIS [None]
  - PYREXIA [None]
